FAERS Safety Report 8956713 (Version 1)
Quarter: 2012Q4

REPORT INFORMATION
  Report Type: Spontaneous
  Country: US (occurrence: None)
  Receive Date: 20121205
  Receipt Date: 20121205
  Transmission Date: 20130627
  Serious: No
  Sender: FDA-Public Use
  Company Number: None

PATIENT

DRUGS (2)
  1. MORPHINE [Suspect]
     Dosage: 1 mg IV
     Route: 042
  2. MORPHINE SYRINGE PYXIS [Suspect]
     Dosage: 1 mg/1 ml oral morphine syringe
     Route: 048

REACTIONS (3)
  - Incorrect route of drug administration [None]
  - Intercepted drug administration error [None]
  - Medication error [None]
